FAERS Safety Report 4768069-2 (Version None)
Quarter: 2005Q3

REPORT INFORMATION
  Report Type: 
  Country: None (occurrence: None)
  Receive Date: 20050906
  Receipt Date: 20050517
  Transmission Date: 20060218
  Serious: No
  Sender: FDA-Public Use
  Company Number: 2005-BP-08206BP

PATIENT
  Sex: Female

DRUGS (4)
  1. SPIRIVA [Suspect]
     Dosage: 18 MCG QOD (18 MCG), IH
     Route: 055
     Dates: start: 20040101
  2. SPIRIVA [Suspect]
  3. SYNTHROID [Concomitant]
  4. VITAMINS (VITAMINS) [Concomitant]

REACTIONS (2)
  - DRUG INEFFECTIVE [None]
  - URINE ODOUR ABNORMAL [None]
